FAERS Safety Report 10886517 (Version 3)
Quarter: 2015Q2

REPORT INFORMATION
  Report Type: Report from Study
  Country: CA (occurrence: CA)
  Receive Date: 20150304
  Receipt Date: 20150605
  Transmission Date: 20150821
  Serious: No
  Sender: FDA-Public Use
  Company Number: PHHY2014CA075699

PATIENT
  Sex: Male

DRUGS (2)
  1. TASIGNA [Suspect]
     Active Substance: NILOTINIB
     Dosage: 200 MG, BID
     Route: 048
     Dates: start: 20140523
  2. TASIGNA [Suspect]
     Active Substance: NILOTINIB
     Indication: CHRONIC MYELOID LEUKAEMIA
     Dosage: 300 MG, BID
     Route: 048
     Dates: start: 20140523

REACTIONS (9)
  - Throat irritation [Unknown]
  - Hepatic enzyme increased [Recovering/Resolving]
  - Incorrect drug administration duration [Unknown]
  - Dysphonia [Unknown]
  - Anaemia [Unknown]
  - Bone pain [Unknown]
  - Nasopharyngitis [Recovering/Resolving]
  - Pain [Unknown]
  - Alopecia [Unknown]
